FAERS Safety Report 17651502 (Version 1)
Quarter: 2020Q2

REPORT INFORMATION
  Report Type: Spontaneous
  Country: US (occurrence: US)
  Receive Date: 20200409
  Receipt Date: 20200409
  Transmission Date: 20200713
  Serious: Yes (Hospitalization)
  Sender: FDA-Public Use
  Company Number: None

PATIENT
  Age: 41 Year
  Sex: Male
  Weight: 71 kg

DRUGS (5)
  1. G-CSF (FILGRASTIM, AMGEN) [Suspect]
     Active Substance: FILGRASTIM
     Dosage: ?          OTHER DOSE:30 MILLION IU;?
     Dates: end: 20200320
  2. ETOPOSIDE (VP-16) [Suspect]
     Active Substance: ETOPOSIDE
     Dates: start: 20200313
  3. IFOSFAMIDE. [Suspect]
     Active Substance: IFOSFAMIDE
     Dates: end: 20191227
  4. TAXOL [Suspect]
     Active Substance: PACLITAXEL
     Dates: start: 20191225
  5. CARBOPLATIN. [Suspect]
     Active Substance: CARBOPLATIN
     Dates: end: 20200313

REACTIONS (4)
  - Anal ulcer [None]
  - Haemorrhoids [None]
  - Anal abscess [None]
  - Pyrexia [None]

NARRATIVE: CASE EVENT DATE: 20200402
